FAERS Safety Report 15057200 (Version 2)
Quarter: 2018Q2

REPORT INFORMATION
  Report Type: Report from Study
  Country: CA (occurrence: CA)
  Receive Date: 20180624
  Receipt Date: 20180628
  Transmission Date: 20180711
  Serious: Yes (Other)
  Sender: FDA-Public Use
  Company Number: CA-BRISTOL-MYERS SQUIBB COMPANY-BMS-2018-047992

PATIENT
  Age: 47 Year
  Sex: Female

DRUGS (1)
  1. ABATACEPT [Suspect]
     Active Substance: ABATACEPT
     Indication: PRODUCT USED FOR UNKNOWN INDICATION
     Dosage: 125 MG, QWK
     Route: 058
     Dates: start: 20170227

REACTIONS (5)
  - Infection [Recovered/Resolved]
  - Dyspepsia [Unknown]
  - Arthritis [Unknown]
  - Mouth ulceration [Unknown]
  - Gastric ulcer [Unknown]

NARRATIVE: CASE EVENT DATE: 20180614
